FAERS Safety Report 7916697-5 (Version None)
Quarter: 2011Q4

REPORT INFORMATION
  Report Type: 
  Country: None (occurrence: None)
  Receive Date: 20111116
  Receipt Date: 20111104
  Transmission Date: 20120403
  Serious: Yes (Hospitalization)
  Sender: FDA-Public Use
  Company Number: US-BAYER-2011-108235

PATIENT
  Age: 55 Year
  Sex: Female

DRUGS (3)
  1. BETASERON [Suspect]
     Indication: PRODUCT USED FOR UNKNOWN INDICATION
  2. EXTAVIA [Suspect]
     Indication: MULTIPLE SCLEROSIS
     Dosage: 0.25 MG, QOD
     Route: 058
  3. OTHER ANTIHYPERTENSIVES [Concomitant]

REACTIONS (3)
  - CELLULITIS [None]
  - FATIGUE [None]
  - PAIN [None]
